FAERS Safety Report 8334054-7 (Version None)
Quarter: 2012Q2

REPORT INFORMATION
  Report Type: 
  Country: None (occurrence: None)
  Receive Date: 20120503
  Receipt Date: 20120419
  Transmission Date: 20120825
  Serious: Yes (Other)
  Sender: FDA-Public Use
  Company Number: FR-ROCHE-1047227

PATIENT
  Sex: Male
  Weight: 70 kg

DRUGS (6)
  1. CYTARABINE [Concomitant]
     Dates: start: 20111013, end: 20111016
  2. MABTHERA [Suspect]
     Indication: MANTLE CELL LYMPHOMA
     Route: 041
     Dates: start: 20110708
  3. CARMUSTINE [Concomitant]
     Dates: start: 20111012, end: 20111012
  4. MELPHALAN HYDROCHLORIDE [Concomitant]
     Dates: start: 20111017, end: 20111017
  5. MABTHERA [Suspect]
     Route: 041
     Dates: start: 20111011
  6. ETOPOSIDE [Concomitant]
     Dates: start: 20111013, end: 20111016

REACTIONS (1)
  - MYELODYSPLASTIC SYNDROME [None]
